FAERS Safety Report 23932322 (Version 1)
Quarter: 2024Q2

REPORT INFORMATION
  Report Type: Spontaneous
  Country: US (occurrence: None)
  Receive Date: 20240531
  Receipt Date: 20240531
  Transmission Date: 20240716
  Serious: Yes (unspecified)
  Sender: FDA-Public Use
  Company Number: None

PATIENT
  Age: 34 Year
  Sex: Male
  Weight: 85.5 kg

DRUGS (1)
  1. LOTRIMIN ULTRA [Suspect]
     Active Substance: BUTENAFINE HYDROCHLORIDE
     Indication: Pruritus genital
     Dosage: 1 OUNCE DAILY TOPICAL
     Route: 061
     Dates: start: 20240530, end: 20240531

REACTIONS (4)
  - Genital tract inflammation [None]
  - Genital swelling [None]
  - Fungal infection [None]
  - Contraindicated product administered [None]

NARRATIVE: CASE EVENT DATE: 20240530
